FAERS Safety Report 8508245-6 (Version None)
Quarter: 2012Q3

REPORT INFORMATION
  Report Type: 
  Country: None (occurrence: None)
  Receive Date: 20120713
  Receipt Date: 20120702
  Transmission Date: 20120928
  Serious: Yes (Hospitalization)
  Sender: FDA-Public Use
  Company Number: BR-BRISTOL-MYERS SQUIBB COMPANY-16741217

PATIENT
  Age: 85 Year
  Sex: Male
  Weight: 90 kg

DRUGS (12)
  1. ENALAPRIL MALEATE [Concomitant]
  2. APRESOLINE [Concomitant]
  3. FERROUS SULFATE TAB [Concomitant]
  4. MINERAL TAB [Concomitant]
     Dosage: NEOVITE
  5. LASIX [Concomitant]
  6. VITAMIN [Concomitant]
     Dosage: NEOVITE
  7. MILGAMMA [Concomitant]
  8. ONGLYZA [Suspect]
     Indication: DIABETES MELLITUS
     Dosage: 5MG TABS SPLITTING IN THE MIDDLE,THEN 5MG,2.5MG
     Route: 048
     Dates: start: 20120401
  9. SUSTRATE [Concomitant]
  10. AMLODIPINE [Concomitant]
  11. LOVAZA [Concomitant]
  12. ASPIRIN [Concomitant]

REACTIONS (3)
  - CARDIAC DISORDER [None]
  - MEDICATION ERROR [None]
  - PNEUMONIA [None]
